FAERS Safety Report 8352503-5 (Version None)
Quarter: 2012Q2

REPORT INFORMATION
  Report Type: 
  Country: None (occurrence: None)
  Receive Date: 20120509
  Receipt Date: 20120430
  Transmission Date: 20120825
  Serious: Yes (Other)
  Sender: FDA-Public Use
  Company Number: AUR-APL-2012-02057

PATIENT
  Age: 73 Year
  Sex: Female

DRUGS (10)
  1. ALENDRONIC ACID (ALENDRONIC ACID) [Suspect]
     Indication: OSTEOPOROSIS
     Dosage: 70 MG, 1 WK, ORAL
     Route: 048
     Dates: start: 20120201
  2. TRIAMTERENE/HCTZ (DYAZIDE) [Concomitant]
  3. TIMOLOL MALEATE [Concomitant]
  4. MULTI-VITAMIN [Concomitant]
  5. NIFEDIAC (NIFEDIPINE) [Concomitant]
  6. SIMVASTATIN [Concomitant]
  7. METFORMIN HCL [Concomitant]
  8. IBUPROFEN [Concomitant]
  9. AZOPT [Concomitant]
  10. VITAMIN D [Concomitant]

REACTIONS (1)
  - HYPERGLYCAEMIA [None]
